FAERS Safety Report 4787508-4 (Version None)
Quarter: 2005Q4

REPORT INFORMATION
  Report Type: 
  Country: None (occurrence: None)
  Receive Date: 20051004
  Receipt Date: 20050921
  Transmission Date: 20060501
  Serious: Yes (Other)
  Sender: FDA-Public Use
  Company Number: BE-JNJFOC-20050904760

PATIENT
  Age: 51 Year
  Sex: Male

DRUGS (3)
  1. REMICADE [Suspect]
     Dosage: FIVE INFUSIONS, 5TH INFUSION 2 MONTHS AGO.
     Route: 042
  2. REMICADE [Suspect]
     Route: 042
  3. REMICADE [Suspect]
     Indication: ANKYLOSING SPONDYLITIS
     Route: 042

REACTIONS (1)
  - SUBCORNEAL PUSTULAR DERMATOSIS [None]
